FAERS Safety Report 8158463-4 (Version None)
Quarter: 2012Q1

REPORT INFORMATION
  Report Type: 
  Country: None (occurrence: None)
  Receive Date: 20120209
  Receipt Date: 20120206
  Transmission Date: 20120608
  Serious: Yes (Death)
  Sender: FDA-Public Use
  Company Number: 2011030623

PATIENT
  Age: 50 Year
  Sex: Female

DRUGS (11)
  1. CLOZARIL [Concomitant]
  2. LYRICA [Concomitant]
  3. VELCADE [Concomitant]
  4. MIRTAZAPINE [Concomitant]
  5. ENOXAPARIN SODIUM [Concomitant]
  6. TRANCOPAL [Concomitant]
  7. LEVOFLOXACIN [Concomitant]
  8. PANTOPRAZOLE SODIUM [Concomitant]
  9. PRIVIGEN [Suspect]
     Indication: SELECTIVE IGG SUBCLASS DEFICIENCY
     Dosage: 10 G INTRAVENOUS (NOT OTHERWISE SPECIFIED)
     Route: 042
     Dates: start: 20111122, end: 20111122
  10. PAMIDRONATE DISODIUM [Concomitant]
  11. LORAZEPAM [Concomitant]

REACTIONS (1)
  - DEATH [None]
